FAERS Safety Report 18618145 (Version 1)
Quarter: 2020Q4

REPORT INFORMATION
  Report Type: Spontaneous
  Country: US (occurrence: US)
  Receive Date: 20201215
  Receipt Date: 20201215
  Transmission Date: 20210114
  Serious: Yes (Other)
  Sender: FDA-Public Use
  Company Number: None

PATIENT
  Age: 38 Year
  Sex: Female
  Weight: 104 kg

DRUGS (8)
  1. IBUPROFEN 400 MG [Concomitant]
     Active Substance: IBUPROFEN
     Dates: start: 20200227
  2. CALCIUM CITRATE VITMAIN D 200-250 MG [Concomitant]
     Dates: start: 20200227
  3. FERROUS SULFATE 325 MG [Concomitant]
     Dates: start: 20190823
  4. LISINOPRIL 10 MG [Concomitant]
     Active Substance: LISINOPRIL
     Dates: start: 20200227
  5. ACETAMINOPHEN 500 MG [Concomitant]
     Active Substance: ACETAMINOPHEN
     Dates: start: 20200227
  6. BAMLANIVIMAB. [Suspect]
     Active Substance: BAMLANIVIMAB
     Indication: CORONAVIRUS INFECTION
     Route: 042
     Dates: start: 20201204, end: 20201204
  7. PRENATAL VITAMIN [Concomitant]
     Active Substance: VITAMINS
     Dates: start: 20200227
  8. FOLIC ACID 1 MG [Concomitant]
     Dates: start: 20190823

REACTIONS (3)
  - Dyspnoea [None]
  - Cough [None]
  - Chest pain [None]

NARRATIVE: CASE EVENT DATE: 20201205
